FAERS Safety Report 6877231-4 (Version None)
Quarter: 2010Q3

REPORT INFORMATION
  Report Type: 
  Country: None (occurrence: None)
  Receive Date: 20100727
  Receipt Date: 20100112
  Transmission Date: 20110219
  Serious: No
  Sender: FDA-Public Use
  Company Number: PR-ABBOTT-09P-131-0604026-00

PATIENT
  Sex: Female
  Weight: 75.818 kg

DRUGS (3)
  1. SYNTHROID [Suspect]
     Indication: HYPOTHYROIDISM
     Route: 048
     Dates: end: 20091001
  2. LEXAPRO [Concomitant]
     Indication: DEPRESSION
     Route: 048
  3. CLONAXEPAM [Concomitant]
     Indication: PRODUCT USED FOR UNKNOWN INDICATION
     Dosage: EVERY EVENING
     Route: 048

REACTIONS (5)
  - DEPRESSION [None]
  - EYELID OEDEMA [None]
  - IRRITABLE BOWEL SYNDROME [None]
  - SOMNOLENCE [None]
  - WEIGHT INCREASED [None]
